FAERS Safety Report 13302500 (Version 3)
Quarter: 2017Q2

REPORT INFORMATION
  Report Type: Report from Study
  Country: GB (occurrence: GB)
  Receive Date: 20170307
  Receipt Date: 20170606
  Transmission Date: 20170830
  Serious: Yes (Other)
  Sender: FDA-Public Use
  Company Number: GB-JNJFOC-20170305502

PATIENT
  Age: 56 Year
  Sex: Female
  Weight: 110 kg

DRUGS (5)
  1. GABAPENTIN. [Concomitant]
     Active Substance: GABAPENTIN
     Route: 065
  2. STELARA [Suspect]
     Active Substance: USTEKINUMAB
     Indication: PSORIASIS
     Dosage: PRE-FILLED SYRINGE
     Route: 058
  3. STELARA [Suspect]
     Active Substance: USTEKINUMAB
     Indication: PSORIASIS
     Route: 058
     Dates: start: 20170120
  4. BUSPIRONE [Concomitant]
     Active Substance: BUSPIRONE HYDROCHLORIDE
     Route: 065
  5. QUETIAPINE. [Concomitant]
     Active Substance: QUETIAPINE
     Route: 065

REACTIONS (4)
  - Viral infection [Unknown]
  - Respiratory tract infection [Recovered/Resolved]
  - Lower respiratory tract infection [Unknown]
  - Pharyngitis [Unknown]

NARRATIVE: CASE EVENT DATE: 20161103
